FAERS Safety Report 5315401-7 (Version None)
Quarter: 2007Q2

REPORT INFORMATION
  Report Type: 
  Country: None (occurrence: None)
  Receive Date: 20070503
  Receipt Date: 20070425
  Transmission Date: 20071010
  Serious: Yes (Other)
  Sender: FDA-Public Use
  Company Number: PHBS2007IL07224

PATIENT
  Age: 65 Year
  Sex: Female

DRUGS (1)
  1. ZOMERA [Suspect]
     Indication: BREAST CANCER
     Dosage: 4 MG
     Route: 042

REACTIONS (2)
  - JAW DISORDER [None]
  - OSTEONECROSIS [None]
